FAERS Safety Report 5707350-7 (Version None)
Quarter: 2008Q2

REPORT INFORMATION
  Report Type: 
  Country: None (occurrence: None)
  Receive Date: 20080416
  Receipt Date: 20080407
  Transmission Date: 20081010
  Serious: Yes (Hospitalization)
  Sender: FDA-Public Use
  Company Number: FR-ASTRAZENECA-2008CG00527

PATIENT
  Age: 2433 Day
  Sex: Male
  Weight: 18.8 kg

DRUGS (2)
  1. EMLA [Suspect]
     Route: 061
     Dates: start: 20080213, end: 20080213
  2. D.T. POLIO [Suspect]
     Indication: PROPHYLAXIS
     Route: 058
     Dates: start: 20080213, end: 20080213

REACTIONS (2)
  - LARYNGEAL OEDEMA [None]
  - URTICARIA [None]
